FAERS Safety Report 24030938 (Version 12)
Quarter: 2024Q4

REPORT INFORMATION
  Report Type: Spontaneous
  Country: US (occurrence: US)
  Receive Date: 20240628
  Receipt Date: 20241217
  Transmission Date: 20250115
  Serious: No
  Sender: PFIZER
  Company Number: US-PFIZER INC-PV202400050721

PATIENT
  Age: 14 Year
  Sex: Male
  Weight: 58.6 kg

DRUGS (2)
  1. GENOTROPIN [Suspect]
     Active Substance: SOMATROPIN
     Indication: Hypopituitarism
     Dosage: DAILY DOSE 2.9 MG (ALTERNATING 2.8 MG AND 3.0 MG) 6 DAYS/WEEK
     Route: 058
     Dates: start: 2024
  2. GENOTROPIN [Suspect]
     Active Substance: SOMATROPIN
     Indication: Growth hormone deficiency
     Dosage: DAILY DOSE 2.9 MG (ALTERNATING 2.8 MG AND 3.0 MG) 6 DAYS/WEEK
     Route: 058
     Dates: start: 2024

REACTIONS (8)
  - Device malfunction [Unknown]
  - Device information output issue [Unknown]
  - Device mechanical issue [Unknown]
  - Device power source issue [Unknown]
  - Device difficult to use [Unknown]
  - Device defective [Unknown]
  - Device use error [Unknown]
  - Drug dose omission by device [Unknown]

NARRATIVE: CASE EVENT DATE: 20240101
